FAERS Safety Report 7436283-3 (Version None)
Quarter: 2011Q2

REPORT INFORMATION
  Report Type: 
  Country: None (occurrence: None)
  Receive Date: 20110426
  Receipt Date: 20110415
  Transmission Date: 20111010
  Serious: Yes (Hospitalization)
  Sender: FDA-Public Use
  Company Number: US-US-EMD SERONO, INC.-7047350

PATIENT
  Sex: Female

DRUGS (2)
  1. REBIF [Suspect]
     Indication: PRODUCT USED FOR UNKNOWN INDICATION
     Route: 058
     Dates: start: 20110224, end: 20110310
  2. REBIF [Suspect]
     Route: 058
     Dates: start: 20110310, end: 20110314

REACTIONS (7)
  - HYPOTENSION [None]
  - RENAL IMPAIRMENT [None]
  - CYSTITIS [None]
  - UROSEPSIS [None]
  - FALL [None]
  - INFLUENZA LIKE ILLNESS [None]
  - ABASIA [None]
